FAERS Safety Report 16006744 (Version 1)
Quarter: 2019Q1

REPORT INFORMATION
  Report Type: Spontaneous
  Country: US (occurrence: US)
  Receive Date: 20190226
  Receipt Date: 20190226
  Transmission Date: 20190418
  Serious: No
  Sender: FDA-Public Use
  Company Number: US-ICU MEDICAL, INC.-ICU2018US00025

PATIENT
  Sex: Male

DRUGS (3)
  1. 20% DEXTROSE INJECTION USP (500 ML) [Suspect]
     Active Substance: DEXTROSE
     Indication: PRODUCT USED FOR UNKNOWN INDICATION
     Dosage: 500 MILLILITER
     Route: 042
     Dates: start: 20180725, end: 20180725
  2. 20% DEXTROSE INJECTION USP (500 ML) [Suspect]
     Active Substance: DEXTROSE
     Dosage: 500 MILLILITER
     Route: 042
     Dates: start: 20180725, end: 20180725
  3. NOVOLIN [Suspect]
     Active Substance: INSULIN HUMAN
     Indication: PRODUCT USED FOR UNKNOWN INDICATION
     Dosage: UNK
     Route: 042
     Dates: start: 20180725, end: 20180725

REACTIONS (4)
  - Product formulation issue [None]
  - No adverse event [Unknown]
  - Poor quality product administered [None]
  - Blood glucose abnormal [Recovered/Resolved]

NARRATIVE: CASE EVENT DATE: 20180725
